FAERS Safety Report 25719612 (Version 1)
Quarter: 2025Q3

REPORT INFORMATION
  Report Type: Spontaneous
  Country: US (occurrence: US)
  Receive Date: 20250825
  Receipt Date: 20250825
  Transmission Date: 20251021
  Serious: No
  Sender: ASTELLAS
  Company Number: US-ASTELLAS-2025-AER-045280

PATIENT
  Sex: Female

DRUGS (2)
  1. MYRBETRIQ [Suspect]
     Active Substance: MIRABEGRON
     Indication: Cystitis interstitial
     Route: 050
  2. MYRBETRIQ [Suspect]
     Active Substance: MIRABEGRON
     Route: 050

REACTIONS (1)
  - Off label use [Unknown]
